FAERS Safety Report 8559168-8 (Version None)
Quarter: 2012Q3

REPORT INFORMATION
  Report Type: 
  Country: None (occurrence: None)
  Receive Date: 20120802
  Receipt Date: 20120730
  Transmission Date: 20120928
  Serious: Yes (Hospitalization)
  Sender: FDA-Public Use
  Company Number: DE-AMGEN-DEUSP2012047254

PATIENT
  Age: 71 Year
  Sex: Female
  Weight: 74 kg

DRUGS (8)
  1. CYCLOPHOSPHAMIDE [Suspect]
     Indication: BREAST CANCER
     Dosage: 1020 MG, Q3WK
     Route: 042
     Dates: start: 20091209, end: 20100127
  2. DEXAMETHASONE [Concomitant]
     Indication: PREMEDICATION
     Dosage: 6 MG, UNK
     Route: 042
     Dates: start: 20091209, end: 20100127
  3. ALOXI [Concomitant]
     Indication: PREMEDICATION
     Dosage: 0.25 MG, UNK
     Route: 042
     Dates: start: 20100127, end: 20100127
  4. NEULASTA [Suspect]
     Indication: PREMEDICATION
     Dosage: 6 MG, Q3WK
     Route: 058
     Dates: start: 20091209, end: 20100127
  5. NEULASTA [Suspect]
     Indication: COLONY STIMULATING FACTOR PROPHYLAXIS
  6. MESNA [Concomitant]
     Indication: PREMEDICATION
     Dosage: 600 MG, UNK
     Route: 042
     Dates: start: 20091209, end: 20100127
  7. TAXOTERE [Suspect]
     Indication: BREAST CANCER
     Dosage: 128 MG, Q3WK
     Route: 042
     Dates: start: 20091209, end: 20100127
  8. DEXAMETHASONE [Concomitant]
     Dosage: 16 MG, UNK
     Route: 048
     Dates: start: 20091208, end: 20100126

REACTIONS (1)
  - FATIGUE [None]
